FAERS Safety Report 11371294 (Version 1)
Quarter: 2015Q3

REPORT INFORMATION
  Report Type: Report from Study
  Country: MX (occurrence: MX)
  Receive Date: 20150812
  Receipt Date: 20150812
  Transmission Date: 20151125
  Serious: Yes (Other)
  Sender: FDA-Public Use
  Company Number: PHHY2015MX095375

PATIENT
  Sex: Female

DRUGS (2)
  1. SELOKEN ZOK [Concomitant]
     Indication: PRODUCT USED FOR UNKNOWN INDICATION
     Route: 065
  2. CO-DIOVAN [Suspect]
     Active Substance: HYDROCHLOROTHIAZIDE\VALSARTAN
     Indication: HYPERTENSION
     Dosage: 1 DF (160/12.5 MG), QD
     Route: 065
     Dates: start: 2008, end: 20150728

REACTIONS (4)
  - Blood pressure increased [Recovered/Resolved]
  - Tachycardia [Unknown]
  - Drug ineffective [Recovered/Resolved]
  - Arrhythmia [Unknown]
